FAERS Safety Report 10226364 (Version 2)
Quarter: 2015Q2

REPORT INFORMATION
  Report Type: Report from Study
  Country: US (occurrence: US)
  Receive Date: 20140609
  Receipt Date: 20150526
  Transmission Date: 20150821
  Serious: Yes (Death)
  Sender: FDA-Public Use
  Company Number: US-PFIZER INC-2014153126

PATIENT
  Age: 54 Year
  Sex: Female
  Weight: 120.1 kg

DRUGS (27)
  1. METFORMIN HYDROCHLORIDE. [Concomitant]
     Active Substance: METFORMIN HYDROCHLORIDE
     Indication: DIABETES MELLITUS
     Dosage: 1000 MG, 2X/DAY
     Route: 048
     Dates: start: 2000
  2. HUMULIN NOS [Concomitant]
     Active Substance: INSULIN HUMAN
     Indication: DIABETES MELLITUS
     Dosage: 22 IU, QAM
     Route: 058
     Dates: start: 2011
  3. POLYETHYLENE GLYCOL [Concomitant]
     Active Substance: POLYETHYLENE GLYCOLS
     Indication: CONSTIPATION
     Dosage: 1 DF (TBSP), 1X/DAY
     Route: 048
     Dates: start: 2000
  4. HYDROXYZINE [Concomitant]
     Active Substance: HYDROXYZINE\HYDROXYZINE HYDROCHLORIDE
     Indication: ANXIETY
     Dosage: 50 MG, 1X/DAY
     Route: 048
     Dates: start: 20130102
  5. IBUPROFEN. [Suspect]
     Active Substance: IBUPROFEN
     Indication: OSTEOARTHRITIS
     Dosage: 800 MG, 3X/DAY (TID)
     Route: 048
     Dates: start: 20130108
  6. IBUPROFEN. [Suspect]
     Active Substance: IBUPROFEN
     Indication: RHEUMATOID ARTHRITIS
  7. PANTOPRAZOLE [Concomitant]
     Active Substance: PANTOPRAZOLE SODIUM
     Indication: GASTROOESOPHAGEAL REFLUX DISEASE
     Dosage: 40 MG, 1X/DAY
     Route: 048
     Dates: start: 2008
  8. RANITIDINE [Concomitant]
     Active Substance: RANITIDINE\RANITIDINE HYDROCHLORIDE
     Indication: GASTROOESOPHAGEAL REFLUX DISEASE
     Dosage: 150 MG, 1X/DAY
     Route: 048
     Dates: start: 2002
  9. ZETIA [Concomitant]
     Active Substance: EZETIMIBE
     Indication: HYPERCHOLESTEROLAEMIA
     Dosage: 10 MG, 1X/DAY
     Route: 048
     Dates: start: 2000
  10. HUMULIN NOS [Concomitant]
     Active Substance: INSULIN HUMAN
     Dosage: 8 IU, Q AFTERNOON
     Route: 058
     Dates: start: 2011
  11. CALCIUM WITH VITAMIN D [Concomitant]
     Active Substance: CALCIUM\VITAMIN D
     Indication: OSTEOPOROSIS
     Dosage: 2 DF (TABS), 1X/DAY
     Route: 048
     Dates: start: 2011
  12. ATENOLOL. [Concomitant]
     Active Substance: ATENOLOL
     Indication: HYPERTENSION
     Dosage: 25 MG, 1X/DAY
     Route: 048
     Dates: start: 2003
  13. NEXIUM [Concomitant]
     Active Substance: ESOMEPRAZOLE MAGNESIUM
     Indication: PROPHYLAXIS AGAINST GASTROINTESTINAL ULCER
     Dosage: UNK MG, QD
     Route: 048
     Dates: start: 20130108
  14. PROAIR HFA [Concomitant]
     Active Substance: ALBUTEROL SULFATE
     Indication: ASTHMA
  15. VITAMIN E [Concomitant]
     Active Substance: .ALPHA.-TOCOPHEROL
     Indication: SUPPLEMENTATION THERAPY
     Dosage: 400 MG, 1X/DAY
     Route: 048
     Dates: start: 2012
  16. METHYLPHENIDATE [Concomitant]
     Active Substance: METHYLPHENIDATE
     Indication: ANXIETY
     Dosage: 10 MG, 2X/DAY
     Route: 048
     Dates: start: 2012
  17. OXYCODONE [Concomitant]
     Active Substance: OXYCODONE
     Indication: ARTHRALGIA
     Dosage: 10/ 325MG, PRN
     Route: 048
     Dates: start: 20130906
  18. GLIMEPIRIDE. [Concomitant]
     Active Substance: GLIMEPIRIDE
     Indication: DIABETES MELLITUS
     Dosage: 2 MG, 1X/DAY
     Route: 048
     Dates: start: 201112
  19. CYMBALTA [Concomitant]
     Active Substance: DULOXETINE HYDROCHLORIDE
     Indication: ANXIETY
     Dosage: 60 MG, 1X/DAY
     Route: 048
     Dates: start: 201206
  20. ATORVASTATIN [Concomitant]
     Active Substance: ATORVASTATIN
     Indication: HYPERCHOLESTEROLAEMIA
     Dosage: 40 MG, 1X/DAY
     Route: 048
     Dates: start: 2000
  21. PROAIR HFA [Concomitant]
     Active Substance: ALBUTEROL SULFATE
     Indication: BRONCHITIS CHRONIC
     Dosage: 90 UG, 4X/DAY; ROUTE - INH
     Route: 055
     Dates: start: 2000
  22. HUMULIN NOS [Concomitant]
     Active Substance: INSULIN HUMAN
     Dosage: 31 IU, QPM
     Route: 058
     Dates: start: 2011
  23. AMITIZA [Concomitant]
     Active Substance: LUBIPROSTONE
     Indication: CONSTIPATION
     Dosage: 24 UG, 2X/DAY
     Route: 048
     Dates: start: 2011
  24. COLACE [Concomitant]
     Active Substance: DOCUSATE SODIUM
     Indication: CONSTIPATION
     Dosage: 1 DF, AS NEEDED
     Route: 048
     Dates: start: 2002
  25. PRAMIPEXOLE [Concomitant]
     Active Substance: PRAMIPEXOLE
     Indication: PSYCHOMOTOR HYPERACTIVITY
     Dosage: 0.25 MG, 1X/DAY
     Route: 048
     Dates: start: 201206
  26. FUROSEMIDE. [Concomitant]
     Active Substance: FUROSEMIDE
     Indication: OEDEMA PERIPHERAL
     Dosage: 80 MG, 1X/DAY
     Route: 048
     Dates: start: 20130106
  27. LYRICA [Concomitant]
     Active Substance: PREGABALIN
     Indication: PAIN IN EXTREMITY
     Dosage: 150 MG, 2X/DAY
     Route: 048
     Dates: start: 20130906

REACTIONS (1)
  - Death [Fatal]

NARRATIVE: CASE EVENT DATE: 20140304
